FAERS Safety Report 22537480 (Version 1)
Quarter: 2023Q2

REPORT INFORMATION
  Report Type: Spontaneous
  Country: US (occurrence: None)
  Receive Date: 20230607
  Receipt Date: 20230607
  Transmission Date: 20230721
  Serious: Yes (Other)
  Sender: FDA-Public Use
  Company Number: None

PATIENT
  Age: 69 Year
  Sex: Female
  Weight: 76.5 kg

DRUGS (4)
  1. VENLAFAXINE [Suspect]
     Active Substance: VENLAFAXINE HYDROCHLORIDE
     Indication: Anxiety
     Dosage: 37.5 MG TWICE A DAY ORAL
     Route: 048
     Dates: start: 20230313, end: 20230404
  2. ACETAMINOPHEN [Suspect]
     Active Substance: ACETAMINOPHEN
  3. OXCARBAZEPINE [Suspect]
     Active Substance: OXCARBAZEPINE
  4. GABAPENTIN [Suspect]
     Active Substance: GABAPENTIN

REACTIONS (12)
  - Agitation [None]
  - Irritability [None]
  - Confusional state [None]
  - Bradykinesia [None]
  - Fall [None]
  - Liver function test increased [None]
  - Intentional product use issue [None]
  - Derealisation [None]
  - Agitation [None]
  - Hepatotoxicity [None]
  - Aspartate aminotransferase increased [None]
  - Alanine aminotransferase increased [None]

NARRATIVE: CASE EVENT DATE: 20230404
